FAERS Safety Report 4879001-5 (Version None)
Quarter: 2006Q1

REPORT INFORMATION
  Report Type: 
  Country: None (occurrence: None)
  Receive Date: 20060112
  Receipt Date: 20050628
  Transmission Date: 20060701
  Serious: Yes (Hospitalization)
  Sender: FDA-Public Use
  Company Number: US-MERCK-0506USA03982

PATIENT
  Age: 46 Year
  Sex: Female
  Weight: 94 kg

DRUGS (8)
  1. VIOXX [Suspect]
     Indication: OSTEOARTHRITIS
     Route: 048
     Dates: start: 20040421
  2. ASPIRIN [Concomitant]
     Route: 065
  3. CARDIZEM [Concomitant]
     Route: 065
  4. DYAZIDE [Concomitant]
     Route: 065
  5. METOPROLOL TARTRATE [Concomitant]
     Route: 065
  6. ZOCOR [Concomitant]
     Route: 065
  7. VITAMINS (UNSPECIFIED) [Concomitant]
     Route: 065
  8. GLUCOPHAGE XR [Concomitant]
     Route: 065

REACTIONS (2)
  - ANGINA PECTORIS [None]
  - DIABETES MELLITUS INADEQUATE CONTROL [None]
